FAERS Safety Report 5314986-4 (Version None)
Quarter: 2007Q2

REPORT INFORMATION
  Report Type: 
  Country: None (occurrence: None)
  Receive Date: 20070502
  Receipt Date: 20070424
  Transmission Date: 20071010
  Serious: Yes (Hospitalization)
  Sender: FDA-Public Use
  Company Number: US-GENENTECH-240477

PATIENT
  Sex: Male

DRUGS (14)
  1. BEVACIZUMAB [Suspect]
     Indication: OESOPHAGEAL ADENOCARCINOMA
     Dosage: UNK, UNK
     Dates: start: 20070201
  2. IRINOTECAN HCL [Suspect]
     Indication: OESOPHAGEAL CARCINOMA
     Dosage: UNK, UNK
     Dates: start: 20070201
  3. CISPLATIN [Concomitant]
     Indication: OESOPHAGEAL CARCINOMA
     Dosage: UNK, UNK
     Dates: start: 20070201
  4. RADIOTHERAPY [Suspect]
     Indication: OESOPHAGEAL CARCINOMA
     Dosage: UNK, UNK
     Dates: start: 20070201
  5. ALFUZOSIN HYDROCHLORIDE [Concomitant]
     Indication: DRUG USE FOR UNKNOWN INDICATION
     Dates: start: 20070123
  6. ALPRAZOLAM [Concomitant]
     Indication: DRUG USE FOR UNKNOWN INDICATION
     Dates: start: 20070123
  7. AMBIEN [Concomitant]
     Indication: DRUG USE FOR UNKNOWN INDICATION
     Dates: start: 20070123
  8. ASPIRIN [Concomitant]
     Indication: DRUG USE FOR UNKNOWN INDICATION
     Dates: start: 20070123
  9. ACIPHEX [Concomitant]
     Indication: DRUG USE FOR UNKNOWN INDICATION
     Dates: start: 20070123
  10. VITAMIN CAP [Concomitant]
     Indication: DRUG USE FOR UNKNOWN INDICATION
     Dates: start: 20070123
  11. LORATADINE [Concomitant]
     Indication: DRUG USE FOR UNKNOWN INDICATION
     Dates: start: 20070207
  12. LORAZEPAM [Concomitant]
     Indication: DRUG USE FOR UNKNOWN INDICATION
     Dates: start: 20070207
  13. RANITIDINE [Concomitant]
     Indication: DRUG USE FOR UNKNOWN INDICATION
     Dates: start: 20070221
  14. SUCRALFATE [Concomitant]
     Indication: DRUG USE FOR UNKNOWN INDICATION
     Dates: start: 20070221

REACTIONS (1)
  - OESOPHAGITIS [None]
